FAERS Safety Report 13540448 (Version 1)
Quarter: 2017Q2

REPORT INFORMATION
  Report Type: Other
  Country: US (occurrence: US)
  Receive Date: 20170512
  Receipt Date: 20170512
  Transmission Date: 20170830
  Serious: Yes (Disabling, Other)
  Sender: FDA-Public Use
  Company Number: US-STRONGBRIDGE BIOPHARMA-SR-KEV-2017-012

PATIENT
  Sex: Female

DRUGS (6)
  1. KEVEYIS [Suspect]
     Active Substance: DICHLORPHENAMIDE
     Route: 065
     Dates: start: 20151021
  2. SLOW K+ [Concomitant]
  3. KEVEYIS [Suspect]
     Active Substance: DICHLORPHENAMIDE
     Route: 065
     Dates: start: 20151022
  4. EFFER-K [Concomitant]
  5. KEVEYIS [Suspect]
     Active Substance: DICHLORPHENAMIDE
     Indication: FAMILIAL PERIODIC PARALYSIS
     Route: 065
     Dates: start: 20151020
  6. DIAMOX SEQUELS [Concomitant]
     Active Substance: ACETAZOLAMIDE
     Indication: FAMILIAL PERIODIC PARALYSIS

REACTIONS (7)
  - Paralysis [Recovered/Resolved]
  - Hypokalaemia [Recovered/Resolved]
  - Drug dose omission [Recovered/Resolved]
  - Asthenia [Recovered/Resolved]
  - Tachycardia [Recovered/Resolved]
  - Sensory disturbance [Recovered/Resolved]
  - Paralysis [Recovered/Resolved]

NARRATIVE: CASE EVENT DATE: 201510
